FAERS Safety Report 11964602 (Version 2)
Quarter: 2016Q2

REPORT INFORMATION
  Report Type: Report from Study
  Country: US (occurrence: US)
  Receive Date: 20160127
  Receipt Date: 20160526
  Transmission Date: 20160815
  Serious: Yes (Death, Life-Threatening, Hospitalization, Other)
  Sender: FDA-Public Use
  Company Number: US-ROCHE-1696987

PATIENT
  Age: 58 Year
  Sex: Female
  Weight: 65.45 kg

DRUGS (6)
  1. PACLITAXEL. [Suspect]
     Active Substance: PACLITAXEL
     Indication: OVARIAN CANCER
     Dosage: LAST DOSE PRIOR TO SAE WAS ON 18/NOV/2015
     Route: 065
     Dates: start: 20151111, end: 20151118
  2. CIPRO [Concomitant]
     Active Substance: CIPROFLOXACIN HYDROCHLORIDE
  3. CEFEPIME [Concomitant]
     Active Substance: CEFEPIME HYDROCHLORIDE
  4. BEVACIZUMAB [Suspect]
     Active Substance: BEVACIZUMAB
     Indication: OVARIAN CANCER
     Route: 042
     Dates: start: 20150818
  5. VELIPARIB [Suspect]
     Active Substance: VELIPARIB
     Indication: OVARIAN CANCER
     Dosage: LAST DOSE PRIOR TO SAE WAS ON 15/NOV/2015
     Route: 065
     Dates: start: 20150909, end: 20151115
  6. CARBOPLATIN. [Suspect]
     Active Substance: CARBOPLATIN
     Indication: OVARIAN CANCER
     Dosage: LAST DOSE PRIOR TO SAE WAS ON 11/NOV/2015
     Route: 065
     Dates: start: 20151111

REACTIONS (10)
  - Sepsis [Fatal]
  - White blood cell count decreased [Recovered/Resolved]
  - Ileus [Unknown]
  - Hyponatraemia [Recovered/Resolved]
  - Respiratory failure [Unknown]
  - Platelet count decreased [Recovered/Resolved]
  - Rash maculo-papular [Unknown]
  - Anaemia [Recovered/Resolved]
  - Large intestine perforation [Unknown]
  - Sinus tachycardia [Unknown]

NARRATIVE: CASE EVENT DATE: 20151123
